FAERS Safety Report 9303501 (Version 1)
Quarter: 2013Q2

REPORT INFORMATION
  Report Type: Spontaneous
  Country: US (occurrence: US)
  Receive Date: 20130522
  Receipt Date: 20130522
  Transmission Date: 20140414
  Serious: Yes (Other)
  Sender: FDA-Public Use
  Company Number: US-PFIZER INC-2013157348

PATIENT
  Sex: Male

DRUGS (1)
  1. GABAPENTIN [Suspect]
     Dosage: 2400 MG, 1X/DAY (2 CAPSULES OF 400MG ORALLY THREE TIMES A DAY)
     Route: 048

REACTIONS (2)
  - Hypoacusis [Unknown]
  - Drug effect decreased [Unknown]
